FAERS Safety Report 19397772 (Version 2)
Quarter: 2021Q2

REPORT INFORMATION
  Report Type: Spontaneous
  Country: DE (occurrence: DE)
  Receive Date: 20210610
  Receipt Date: 20210624
  Transmission Date: 20210717
  Serious: Yes (Hospitalization, Other)
  Sender: FDA-Public Use
  Company Number: DE-LUPIN PHARMACEUTICALS INC.-2021-09030

PATIENT
  Age: 60 Year
  Sex: Male

DRUGS (7)
  1. METHYLPREDNISOLONE. [Suspect]
     Active Substance: METHYLPREDNISOLONE
     Indication: IMMUNOSUPPRESSANT DRUG THERAPY
     Dosage: 4 MILLIGRAM, QD
     Route: 065
  2. METHYLPREDNISOLONE. [Suspect]
     Active Substance: METHYLPREDNISOLONE
     Indication: TRANSPLANT FAILURE
     Dosage: UNK (METHYLPREDNISOLONE SHOCK THERAPY)
     Route: 065
  3. TACROLIMUS. [Suspect]
     Active Substance: TACROLIMUS
     Dosage: UNK (THERAPY CONTINUED AT REDUCED DOSAGE)
     Route: 065
  4. TACROLIMUS. [Suspect]
     Active Substance: TACROLIMUS
     Indication: IMMUNOSUPPRESSANT DRUG THERAPY
     Dosage: 4 MILLIGRAM, QD
     Route: 065
  5. MYCOPHENOLIC ACID. [Suspect]
     Active Substance: MYCOPHENOLIC ACID
     Indication: IMMUNOSUPPRESSANT DRUG THERAPY
     Dosage: 720 MILLIGRAM, QD
     Route: 065
  6. ACYCLOVIR. [Concomitant]
     Active Substance: ACYCLOVIR
     Indication: HERPES SIMPLEX ENCEPHALITIS
     Dosage: UNK (STOPPED)
     Route: 051
  7. ACYCLOVIR. [Concomitant]
     Active Substance: ACYCLOVIR
     Indication: EVIDENCE BASED TREATMENT

REACTIONS (1)
  - West Nile viral infection [Recovered/Resolved]
